FAERS Safety Report 5167311-6 (Version None)
Quarter: 2006Q4

REPORT INFORMATION
  Report Type: 
  Country: None (occurrence: None)
  Receive Date: 20061129
  Receipt Date: 20061112
  Transmission Date: 20070319
  Serious: Yes (Death, Life-Threatening, Hospitalization)
  Sender: FDA-Public Use
  Company Number: 2006EU003051

PATIENT
  Age: 62 Year
  Sex: Male

DRUGS (6)
  1. FK506(TACROLIMUS CAPSULES)  CAPSULES [Suspect]
     Indication: LIVER TRANSPLANT
     Dosage: 1 MG, UID/QD, ORAL
     Route: 048
     Dates: start: 20051013, end: 20060602
  2. METHYLPREDNISOLONE(METHYLPRDNISOLONE) [Suspect]
     Indication: LIVER TRANSPLANT
     Dosage: 400 MG, UID/QD
     Dates: start: 20051013, end: 20051023
  3. PREDNISONE TAB [Suspect]
     Indication: LIVER TRANSPLANT
     Dosage: 5 MG, UID/QD
     Dates: start: 20051024, end: 20060602
  4. ROVALCYTE (VALGANCICLOVIR) [Concomitant]
  5. CYMEVAN (GANCICLOVIR SODIUM) [Concomitant]
  6. HEPARIN [Concomitant]

REACTIONS (11)
  - ARRHYTHMIA [None]
  - BACTERIAL PYELONEPHRITIS [None]
  - CARDIO-RESPIRATORY ARREST [None]
  - CONVULSION [None]
  - DRUG TOXICITY [None]
  - ESCHERICHIA INFECTION [None]
  - HYPOTENSION [None]
  - HYPOXIC ENCEPHALOPATHY [None]
  - MULTI-ORGAN FAILURE [None]
  - MYOCARDIAL ISCHAEMIA [None]
  - OBSTRUCTIVE AIRWAYS DISORDER [None]
